FAERS Safety Report 16320471 (Version 1)
Quarter: 2019Q2

REPORT INFORMATION
  Report Type: Spontaneous
  Country: US (occurrence: US)
  Receive Date: 20190515
  Receipt Date: 20190515
  Transmission Date: 20190711
  Serious: Yes (Death)
  Sender: FDA-Public Use
  Company Number: None

PATIENT
  Age: 86 Year

DRUGS (8)
  1. TORSEMIDE. [Concomitant]
     Active Substance: TORSEMIDE
  2. ESBRIET [Suspect]
     Active Substance: PIRFENIDONE
     Indication: PULMONARY FIBROSIS
     Route: 048
     Dates: end: 20190424
  3. PROSCAR, TAMSULOSIN [Concomitant]
  4. ATORVASTATIN, ELIQUIS [Concomitant]
  5. ENTRESTO, FINASTERIDE [Concomitant]
  6. METFORMIN, METOPROL [Concomitant]
  7. GABAPENTIN, IPRATROPIUM/SOL [Concomitant]
  8. LIDOCAINE, LISINOPRIL [Concomitant]

REACTIONS (1)
  - Death [None]

NARRATIVE: CASE EVENT DATE: 20190424
